FAERS Safety Report 22630206 (Version 1)
Quarter: 2023Q2

REPORT INFORMATION
  Report Type: Spontaneous
  Country: US (occurrence: US)
  Receive Date: 20230622
  Receipt Date: 20230622
  Transmission Date: 20230722
  Serious: No
  Sender: FDA-Public Use
  Company Number: US-MYLANLABS-2023M1044120

PATIENT
  Sex: Female
  Weight: 58.97 kg

DRUGS (1)
  1. ESTRADIOL TRANSDERMAL SYSTEM [Suspect]
     Active Substance: ESTRADIOL
     Indication: Hot flush
     Dosage: 0.1 MILLIGRAM, QD (TWICE WEEKLY)
     Route: 062

REACTIONS (3)
  - Rash [Unknown]
  - Pruritus [Unknown]
  - Off label use [Unknown]
